FAERS Safety Report 8331573-4 (Version None)
Quarter: 2012Q2

REPORT INFORMATION
  Report Type: 
  Country: None (occurrence: None)
  Receive Date: 20120502
  Receipt Date: 20120419
  Transmission Date: 20120825
  Serious: No
  Sender: FDA-Public Use
  Company Number: US-AMGEN-USASP2012023943

PATIENT
  Age: 65 Year
  Sex: Female

DRUGS (1)
  1. ENBREL [Suspect]
     Indication: RHEUMATOID ARTHRITIS
     Dosage: 50 MG, QWK
     Dates: start: 20100715, end: 20110101

REACTIONS (7)
  - LIGAMENT SPRAIN [None]
  - RHEUMATOID ARTHRITIS [None]
  - ADVERSE EVENT [None]
  - BACK INJURY [None]
  - SPINAL FRACTURE [None]
  - MUSCLE SPASMS [None]
  - PAIN [None]
